FAERS Safety Report 18699976 (Version 1)
Quarter: 2021Q1

REPORT INFORMATION
  Report Type: Spontaneous
  Country: US (occurrence: US)
  Receive Date: 20210105
  Receipt Date: 20210105
  Transmission Date: 20210419
  Serious: Yes (Death, Other)
  Sender: FDA-Public Use
  Company Number: US-JAZZ-2020-US-017883

PATIENT
  Sex: Male

DRUGS (1)
  1. ZEPZELCA [Suspect]
     Active Substance: LURBINECTEDIN
     Indication: SMALL CELL LUNG CANCER

REACTIONS (6)
  - Neutropenia [Unknown]
  - Septic shock [Fatal]
  - Blood count abnormal [Unknown]
  - Platelet count decreased [Unknown]
  - Pain in extremity [Unknown]
  - Sepsis [Unknown]

NARRATIVE: CASE EVENT DATE: 20201222
